FAERS Safety Report 21577377 (Version 1)
Quarter: 2022Q4

REPORT INFORMATION
  Report Type: Spontaneous
  Country: GB (occurrence: GB)
  Receive Date: 20221110
  Receipt Date: 20221110
  Transmission Date: 20230112
  Serious: No
  Sender: FDA-Public Use
  Company Number: GB-MHRA-MED-202211081407213470-GWRSK

PATIENT

DRUGS (2)
  1. SOTROVIMAB [Suspect]
     Active Substance: SOTROVIMAB
     Indication: Adverse drug reaction
     Dosage: 8 ML
     Route: 042
     Dates: start: 20221107
  2. SOTROVIMAB [Suspect]
     Active Substance: SOTROVIMAB
     Indication: COVID-19

REACTIONS (1)
  - Dizziness [Recovered/Resolved]

NARRATIVE: CASE EVENT DATE: 20221107
